FAERS Safety Report 15155160 (Version 2)
Quarter: 2018Q3

REPORT INFORMATION
  Report Type: Spontaneous
  Country: JP (occurrence: JP)
  Receive Date: 20180717
  Receipt Date: 20180821
  Transmission Date: 20181010
  Serious: Yes (Hospitalization, Other)
  Sender: FDA-Public Use
  Company Number: JP-MITSUBISHI TANABE PHARMA CORPORATION-MTPC2018-0016148

PATIENT
  Age: 39 Year
  Sex: Female

DRUGS (7)
  1. SEVOFLURANE. [Concomitant]
     Active Substance: SEVOFLURANE
     Indication: ANAESTHESIA PROCEDURE
     Route: 065
  2. FENTANYL CITRATE. [Concomitant]
     Active Substance: FENTANYL CITRATE
     Indication: ANAESTHESIA PROCEDURE
     Route: 065
  3. PROPOFOL. [Concomitant]
     Active Substance: PROPOFOL
     Indication: ANAESTHESIA PROCEDURE
     Route: 065
  4. EDARAVONE [Suspect]
     Active Substance: EDARAVONE
     Indication: MOYAMOYA DISEASE
     Route: 042
  5. ASPIRIN. [Suspect]
     Active Substance: ASPIRIN
     Indication: MOYAMOYA DISEASE
     Route: 048
  6. ROCURONIUM BROMIDE. [Concomitant]
     Active Substance: ROCURONIUM BROMIDE
     Indication: ANAESTHESIA PROCEDURE
     Route: 065
  7. REMIFENTANIL HYDROCHLORIDE. [Concomitant]
     Active Substance: REMIFENTANIL HYDROCHLORIDE
     Indication: ANAESTHESIA PROCEDURE
     Route: 065

REACTIONS (5)
  - Fine motor skill dysfunction [Unknown]
  - Cerebral haemorrhage [Recovered/Resolved]
  - Brain abscess [Recovering/Resolving]
  - Subcutaneous abscess [Recovering/Resolving]
  - Staphylococcal infection [Recovering/Resolving]
